FAERS Safety Report 21247073 (Version 2)
Quarter: 2022Q3

REPORT INFORMATION
  Report Type: Spontaneous
  Country: FR (occurrence: FR)
  Receive Date: 20220824
  Receipt Date: 20220828
  Transmission Date: 20221026
  Serious: Yes (Death, Hospitalization, Other)
  Sender: FDA-Public Use
  Company Number: FR-MYLANLABS-2022M1084885

PATIENT
  Age: 67 Year
  Sex: Female

DRUGS (3)
  1. RAMIPRIL [Suspect]
     Active Substance: RAMIPRIL
     Indication: Peripheral arterial occlusive disease
     Dosage: 5 MG/DAY
  2. IRBESARTAN [Suspect]
     Active Substance: IRBESARTAN
     Indication: Peripheral arterial occlusive disease
     Dosage: 300 MG, QD
  3. SITAGLIPTIN [Suspect]
     Active Substance: SITAGLIPTIN
     Indication: Type 2 diabetes mellitus
     Dosage: 100 MG, QD

REACTIONS (4)
  - Laryngeal oedema [Fatal]
  - Asphyxia [Fatal]
  - Angioedema [Fatal]
  - Contraindicated product administered [Fatal]
